FAERS Safety Report 19465814 (Version 3)
Quarter: 2021Q3

REPORT INFORMATION
  Report Type: Report from Study
  Country: US (occurrence: US)
  Receive Date: 20210626
  Receipt Date: 20210710
  Transmission Date: 20211014
  Serious: Yes (Hospitalization, Other)
  Sender: FDA-Public Use
  Company Number: NVSC2021US135073

PATIENT
  Age: 44 Year
  Sex: Male

DRUGS (1)
  1. ENTRESTO [Suspect]
     Active Substance: SACUBITRIL\VALSARTAN
     Indication: PRODUCT USED FOR UNKNOWN INDICATION
     Dosage: UNK
     Route: 065

REACTIONS (13)
  - Dyspnoea [Recovering/Resolving]
  - Fluid retention [Recovering/Resolving]
  - Weight decreased [Recovering/Resolving]
  - Somnolence [Unknown]
  - COVID-19 [Unknown]
  - Fatigue [Recovering/Resolving]
  - Insomnia [Unknown]
  - Heart rate increased [Recovering/Resolving]
  - Weight increased [Recovering/Resolving]
  - Cough [Recovering/Resolving]
  - Renal failure [Recovering/Resolving]
  - Drowning [Recovered/Resolved]
  - Ejection fraction decreased [Unknown]

NARRATIVE: CASE EVENT DATE: 202003
